FAERS Safety Report 24601552 (Version 2)
Quarter: 2024Q4

REPORT INFORMATION
  Report Type: Spontaneous
  Country: US (occurrence: US)
  Receive Date: 20241111
  Receipt Date: 20241115
  Transmission Date: 20250115
  Serious: No
  Sender: ROCHE
  Company Number: US-ROCHE-10000127636

PATIENT
  Sex: Female

DRUGS (1)
  1. SUSVIMO [Suspect]
     Active Substance: RANIBIZUMAB
     Indication: Neovascular age-related macular degeneration
     Route: 050
     Dates: start: 20220919, end: 20240927

REACTIONS (3)
  - Conjunctival erosion [Unknown]
  - Hypotony of eye [Not Recovered/Not Resolved]
  - Eye irritation [Not Recovered/Not Resolved]
